FAERS Safety Report 20316187 (Version 8)
Quarter: 2022Q3

REPORT INFORMATION
  Report Type: Report from Study
  Country: US (occurrence: US)
  Receive Date: 20220110
  Receipt Date: 20220926
  Transmission Date: 20221027
  Serious: Yes (Hospitalization, Other)
  Sender: FDA-Public Use
  Company Number: US-NOVARTISPH-NVSC2022US001498

PATIENT
  Sex: Male

DRUGS (1)
  1. ENTRESTO [Suspect]
     Active Substance: SACUBITRIL\VALSARTAN
     Indication: Product used for unknown indication
     Dosage: 1 DOSAGE FORM, BID (49/51 MG)
     Route: 048
     Dates: start: 2015

REACTIONS (9)
  - Road traffic accident [Unknown]
  - Pneumonia [Unknown]
  - Dyspnoea [Unknown]
  - Thrombosis [Unknown]
  - Cardiac disorder [Unknown]
  - Depressed mood [Unknown]
  - Myalgia [Unknown]
  - Bronchitis [Unknown]
  - Ill-defined disorder [Recovering/Resolving]
